FAERS Safety Report 9284975 (Version 1)
Quarter: 2013Q2

REPORT INFORMATION
  Report Type: Report from Study
  Country: PT (occurrence: PT)
  Receive Date: 20130513
  Receipt Date: 20130513
  Transmission Date: 20140414
  Serious: Yes (Other)
  Sender: FDA-Public Use
  Company Number: PHHY2013PT045592

PATIENT
  Age: 47 Year
  Sex: Male

DRUGS (3)
  1. IMATINIB [Suspect]
     Indication: GASTROINTESTINAL STROMAL TUMOUR
     Dosage: 400 MG, QD
     Dates: start: 20100806
  2. IMATINIB [Suspect]
     Dosage: 400 MG, UNK
     Dates: start: 20110110
  3. IMATINIB [Suspect]
     Dosage: 300 MG, UNK
     Dates: start: 20110322

REACTIONS (13)
  - Synovial cyst [Unknown]
  - Gastrointestinal stromal tumour [Unknown]
  - Malignant neoplasm progression [Unknown]
  - Metastases to liver [Unknown]
  - Neutropenia [Unknown]
  - Nausea [Unknown]
  - Vomiting [Unknown]
  - Weight decreased [Unknown]
  - Decreased appetite [Unknown]
  - Mucosal inflammation [Unknown]
  - Thrombocytopenia [Unknown]
  - Headache [Unknown]
  - Diarrhoea [Unknown]
